FAERS Safety Report 11005641 (Version 1)
Quarter: 2015Q2

REPORT INFORMATION
  Report Type: Spontaneous
  Country: US (occurrence: US)
  Receive Date: 20150409
  Receipt Date: 20150409
  Transmission Date: 20150821
  Serious: No
  Sender: FDA-Public Use
  Company Number: US-ALLERGAN-1407340US

PATIENT
  Age: 68 Year
  Sex: Male

DRUGS (2)
  1. LUMIGAN [Suspect]
     Active Substance: BIMATOPROST
     Indication: INTRAOCULAR PRESSURE INCREASED
     Dosage: 2 GTT, QHS
     Route: 047
  2. ARTIFICIAL TEARS                   /00445101/ [Concomitant]
     Indication: EYE LUBRICATION THERAPY
     Dosage: 2 GTT, TID
     Route: 047

REACTIONS (1)
  - Intraocular pressure increased [Recovering/Resolving]

NARRATIVE: CASE EVENT DATE: 20140401
